FAERS Safety Report 20076310 (Version 1)
Quarter: 2021Q4

REPORT INFORMATION
  Report Type: Report from Study
  Country: FR (occurrence: FR)
  Receive Date: 20211116
  Receipt Date: 20211116
  Transmission Date: 20220303
  Serious: Yes (Other)
  Sender: FDA-Public Use
  Company Number: FR-Merck Healthcare KGaA-9277842

PATIENT
  Age: 78 Year
  Sex: Female

DRUGS (3)
  1. CETUXIMAB [Suspect]
     Active Substance: CETUXIMAB
     Indication: Squamous cell carcinoma of head and neck
     Dosage: 620 MG, UNKNOWN
     Route: 042
     Dates: start: 20200831
  2. CETUXIMAB [Suspect]
     Active Substance: CETUXIMAB
     Dosage: 400 MG, UNKNOWN
     Route: 042
     Dates: start: 20200908
  3. CETUXIMAB [Suspect]
     Active Substance: CETUXIMAB
     Dosage: 400 MG, UNKNOWN
     Route: 042
     Dates: start: 20201006

REACTIONS (3)
  - Radiation mucositis [Not Recovered/Not Resolved]
  - Dysphagia [Not Recovered/Not Resolved]
  - Malnutrition [Not Recovered/Not Resolved]

NARRATIVE: CASE EVENT DATE: 20201012
